FAERS Safety Report 5715475-5 (Version None)
Quarter: 2008Q2

REPORT INFORMATION
  Report Type: 
  Country: None (occurrence: None)
  Receive Date: 20080422
  Receipt Date: 20080411
  Transmission Date: 20081010
  Serious: Yes (Hospitalization)
  Sender: FDA-Public Use
  Company Number: 163-21880-08040982

PATIENT
  Age: 48 Year
  Sex: Male

DRUGS (7)
  1. REVLIMID [Suspect]
     Indication: MULTIPLE MYELOMA
     Dosage: 15 MG, ON DAYS 1 - 14 EVERY 21 DAYS, ORAL; 25 MG, X21 DAYS EVERY 28 DAYS, ORAL
     Route: 048
     Dates: start: 20070301, end: 20070501
  2. REVLIMID [Suspect]
     Indication: MULTIPLE MYELOMA
     Dosage: 15 MG, ON DAYS 1 - 14 EVERY 21 DAYS, ORAL; 25 MG, X21 DAYS EVERY 28 DAYS, ORAL
     Route: 048
     Dates: start: 20080201
  3. DECADRON [Concomitant]
  4. VELCADE [Concomitant]
  5. ACYCLOVIR [Concomitant]
  6. PROTONIX [Concomitant]
  7. ASPIRIN [Concomitant]

REACTIONS (3)
  - DISEASE PROGRESSION [None]
  - HYPERCALCAEMIA [None]
  - TRANSPLANT [None]
